FAERS Safety Report 14698383 (Version 2)
Quarter: 2018Q3

REPORT INFORMATION
  Report Type: Spontaneous
  Country: US (occurrence: US)
  Receive Date: 20180330
  Receipt Date: 20180711
  Transmission Date: 20181010
  Serious: No
  Sender: FDA-Public Use
  Company Number: US-ASTRAZENECA-2018SE37818

PATIENT
  Age: 20358 Day
  Sex: Female
  Weight: 76.2 kg

DRUGS (16)
  1. ALBUTEROL. [Concomitant]
     Active Substance: ALBUTEROL
     Indication: BRONCHIAL HYPERREACTIVITY
     Dosage: (2.5 MG/3 ML) 0.083 PERCENT INHALATION NEBULIZATION, 1 EVERY 4?6 HOURS AS NEEDED
  2. WELLBUTRIN [Concomitant]
     Active Substance: BUPROPION HYDROCHLORIDE
     Route: 048
  3. METFORMIN [Concomitant]
     Active Substance: METFORMIN HYDROCHLORIDE
     Dosage: ONE TAB TWICE DAILY
     Route: 048
  4. ALPRAZOLAM. [Concomitant]
     Active Substance: ALPRAZOLAM
     Indication: ANXIETY
     Dosage: HALF TO ONE TABS EVERY 8 HRS OR PRN
     Route: 048
  5. FARXIGA [Suspect]
     Active Substance: DAPAGLIFLOZIN PROPANEDIOL
     Indication: TYPE 2 DIABETES MELLITUS
     Route: 048
     Dates: start: 20180316, end: 20180320
  6. PROAIR HFA [Concomitant]
     Active Substance: ALBUTEROL SULFATE
     Indication: BRONCHIAL HYPERREACTIVITY
     Dosage: 1?2 PUFFS EVERY 4?6 HOURS PRN
  7. NEURONTIN [Concomitant]
     Active Substance: GABAPENTIN
     Dosage: 1 CAP HS
     Route: 048
  8. EPINEPHRINE. [Concomitant]
     Active Substance: EPINEPHRINE
     Indication: HYPERSENSITIVITY
     Dosage: 0.3 MG/0.3 ML
     Route: 030
  9. ZETIA [Concomitant]
     Active Substance: EZETIMIBE
     Indication: HYPERLIPIDAEMIA
     Dosage: 1 BY MOUTH AT BEDTIME
     Route: 048
  10. AMBIEN [Concomitant]
     Active Substance: ZOLPIDEM TARTRATE
     Indication: INSOMNIA
     Dosage: ONE TABLET AT BEDTIME WHEN NEEDED
     Route: 048
  11. RANITIDINE. [Concomitant]
     Active Substance: RANITIDINE
     Indication: GASTROOESOPHAGEAL REFLUX DISEASE
     Route: 048
  12. INFLUENZA [Suspect]
     Active Substance: INFLUENZA VIRUS VACCINE
     Dosage: ONCE/SINGLE ADMINISTRATION
     Route: 065
     Dates: start: 20141120
  13. SPIRONOLACTONE. [Concomitant]
     Active Substance: SPIRONOLACTONE
     Dosage: ONE PILL TWICE DAILY
     Route: 048
  14. ATROVENT [Concomitant]
     Active Substance: IPRATROPIUM BROMIDE
     Indication: WHEEZING
     Dosage: 1?2 PUFFS BY MOUTH EVERY 4 HRS PRN
     Route: 055
  15. VENLAFAXINE HYDROCHLORIDE. [Concomitant]
     Active Substance: VENLAFAXINE HYDROCHLORIDE
     Dosage: ONE CAPSULE DAILY X 4 DAYS, THEN MAY INCREASE TO 2 CAPSULES DAILY
     Route: 048
  16. WELLBUTRIN [Concomitant]
     Active Substance: BUPROPION HYDROCHLORIDE
     Dosage: 150 MG DAILY FOR A TOTAL OF 450 MG

REACTIONS (7)
  - Post-traumatic stress disorder [Unknown]
  - Gastrooesophageal reflux disease [Unknown]
  - Bronchial hyperreactivity [Unknown]
  - Dyspnoea [Recovered/Resolved]
  - Depression [Unknown]
  - Anxiety [Unknown]
  - Adverse drug reaction [Unknown]

NARRATIVE: CASE EVENT DATE: 20180316
